FAERS Safety Report 8333730-X (Version None)
Quarter: 2012Q2

REPORT INFORMATION
  Report Type: 
  Country: None (occurrence: None)
  Receive Date: 20120503
  Receipt Date: 20120503
  Transmission Date: 20120825
  Serious: Yes (Life-Threatening)
  Sender: FDA-Public Use
  Company Number: None

PATIENT
  Sex: Male
  Weight: 113.39 kg

DRUGS (8)
  1. GEMFIBROZIL [Suspect]
     Indication: BLOOD TRIGLYCERIDES INCREASED
     Dosage: |STRENGTH: 600MG||ROUTE: ORAL|
     Route: 048
     Dates: start: 20120410, end: 20120429
  2. GEMFIBROZIL [Concomitant]
     Route: 048
  3. LISINOPRIL [Concomitant]
     Route: 048
  4. CARVEDILOL [Concomitant]
     Route: 048
  5. HYDROCHLOROTHIAZIDE [Concomitant]
     Route: 048
  6. LEVOXYL [Concomitant]
     Route: 048
  7. METFORMIN HCL [Concomitant]
     Route: 048
  8. LISINOPRIL [Suspect]
     Indication: BLOOD PRESSURE INCREASED
     Dosage: |STRENGTH: 10MG||ROUTE: ORAL|
     Route: 048
     Dates: start: 20120405, end: 20120429

REACTIONS (1)
  - ANGIOEDEMA [None]
